FAERS Safety Report 24333275 (Version 2)
Quarter: 2024Q4

REPORT INFORMATION
  Report Type: Spontaneous
  Country: US (occurrence: US)
  Receive Date: 20240918
  Receipt Date: 20241010
  Transmission Date: 20250115
  Serious: No
  Sender: PFIZER
  Company Number: US-PFIZER INC-PV202400081178

PATIENT
  Age: 44 Year
  Sex: Female

DRUGS (2)
  1. TUKYSA [Suspect]
     Active Substance: TUCATINIB
     Dosage: 150 MG; 1 TABLET TWICE DAILY
  2. TUKYSA [Suspect]
     Active Substance: TUCATINIB
     Dosage: 50 MG, 1X/DAY

REACTIONS (4)
  - Dyspepsia [Unknown]
  - Gastrooesophageal reflux disease [Unknown]
  - Throat irritation [Unknown]
  - Off label use [Unknown]
